FAERS Safety Report 14813777 (Version 1)
Quarter: 2018Q2

REPORT INFORMATION
  Report Type: Spontaneous
  Country: US (occurrence: US)
  Receive Date: 20180426
  Receipt Date: 20180426
  Transmission Date: 20180711
  Serious: No
  Sender: FDA-Public Use
  Company Number: US-PFIZER INC-2018170361

PATIENT
  Age: 66 Year
  Sex: Male
  Weight: 92.53 kg

DRUGS (1)
  1. ADVIL [Suspect]
     Active Substance: IBUPROFEN
     Indication: HEADACHE
     Dosage: 1-2 AS NEEDED
     Route: 048
     Dates: end: 201804

REACTIONS (3)
  - Poor quality drug administered [Recovered/Resolved]
  - Product physical issue [Recovered/Resolved]
  - Throat irritation [Recovered/Resolved]

NARRATIVE: CASE EVENT DATE: 201804
